FAERS Safety Report 8383170-2 (Version None)
Quarter: 2012Q2

REPORT INFORMATION
  Report Type: 
  Country: None (occurrence: None)
  Receive Date: 20120524
  Receipt Date: 20120515
  Transmission Date: 20120825
  Serious: Yes (Other)
  Sender: FDA-Public Use
  Company Number: CH-BRISTOL-MYERS SQUIBB COMPANY-15633324

PATIENT
  Age: 34 Year
  Sex: Female

DRUGS (1)
  1. IRBESARTAN + HYDROCHLOROTHIAZIDE [Suspect]
     Indication: HYPERTENSION
     Dosage: 1DF=300MG+12.5MG
     Dates: start: 20110315, end: 20110315

REACTIONS (2)
  - PREMATURE RUPTURE OF MEMBRANES [None]
  - PREGNANCY [None]
